FAERS Safety Report 16801569 (Version 2)
Quarter: 2019Q4

REPORT INFORMATION
  Report Type: Report from Study
  Country: GB (occurrence: DE)
  Receive Date: 20190912
  Receipt Date: 20191219
  Transmission Date: 20200122
  Serious: Yes (Hospitalization)
  Sender: FDA-Public Use
  Company Number: GB-MYLANLABS-2019M1084181

PATIENT
  Age: 24 Year
  Sex: Female
  Weight: 107 kg

DRUGS (13)
  1. INSULIN ASPART [Suspect]
     Active Substance: INSULIN ASPART
     Dosage: 5 INTERNATIONAL UNIT, QD
     Route: 058
     Dates: start: 20171201
  2. FOLIC ACID. [Concomitant]
     Active Substance: FOLIC ACID
     Indication: PROPHYLAXIS
     Dosage: UNK
     Route: 065
     Dates: start: 20170510
  3. ACTRAPID [Concomitant]
     Active Substance: INSULIN HUMAN
     Indication: TYPE 1 DIABETES MELLITUS
     Dosage: 32 INTERNATIONAL UNIT, QD
     Route: 042
     Dates: start: 20180117, end: 20180117
  4. INSULIN GLARGINE [Suspect]
     Active Substance: INSULIN GLARGINE
     Dosage: 56 DOSAGE FORM
     Route: 058
  5. INSULIN GLARGINE [Suspect]
     Active Substance: INSULIN GLARGINE
     Dosage: 56 INTERNATIONAL UNIT, QD
     Route: 058
  6. INSULIN ASPART [Suspect]
     Active Substance: INSULIN ASPART
     Dosage: 5 DOSAGE FORM, QD
     Route: 058
     Dates: start: 20171201
  7. INSULIN ASPART [Suspect]
     Active Substance: INSULIN ASPART
     Indication: TYPE 1 DIABETES MELLITUS
     Dosage: 40 U, QD
     Route: 058
     Dates: start: 20140506
  8. METFORMIN [Concomitant]
     Active Substance: METFORMIN HYDROCHLORIDE
     Indication: TYPE 1 DIABETES MELLITUS
     Dosage: 500 MILLIGRAM, QD
     Route: 048
     Dates: start: 20171103
  9. INSULIN ASPART [Suspect]
     Active Substance: INSULIN ASPART
     Dosage: 40 DOSAGE FORM, QD
     Route: 058
     Dates: start: 20140506
  10. ACTRAPID [Concomitant]
     Active Substance: INSULIN HUMAN
     Dosage: 32 DOSAGE FORM, QD
     Route: 042
     Dates: start: 20180117, end: 20180117
  11. INSULIN GLARGINE [Suspect]
     Active Substance: INSULIN GLARGINE
     Indication: TYPE 1 DIABETES MELLITUS
     Dosage: 42 INTERNATIONAL UNIT, QD
     Route: 058
     Dates: start: 20140506
  12. INSULIN GLARGINE [Suspect]
     Active Substance: INSULIN GLARGINE
     Dosage: 42 DOSAGE FORM, QD
     Route: 058
     Dates: start: 20140506
  13. RANITIDINE. [Suspect]
     Active Substance: RANITIDINE
     Indication: PROPHYLAXIS
     Dosage: UNK
     Route: 065
     Dates: start: 20170920

REACTIONS (4)
  - Diabetic ketosis [Recovered/Resolved]
  - Nausea [Recovered/Resolved]
  - Vomiting [Recovered/Resolved]
  - Maternal exposure during pregnancy [Recovered/Resolved]

NARRATIVE: CASE EVENT DATE: 20170502
